FAERS Safety Report 12547163 (Version 4)
Quarter: 2017Q1

REPORT INFORMATION
  Report Type: Report from Study
  Country: None (occurrence: IL)
  Receive Date: 20160711
  Receipt Date: 20170328
  Transmission Date: 20170428
  Serious: Yes (Death, Life-Threatening, Hospitalization, Other)
  Sender: FDA-Public Use
  Company Number: IL-ABBVIE-16P-082-1668834-00

PATIENT
  Age: 44 Year
  Sex: Male

DRUGS (3)
  1. VENETOCLAX [Suspect]
     Active Substance: VENETOCLAX
     Route: 048
  2. VENETOCLAX [Suspect]
     Active Substance: VENETOCLAX
     Route: 048
  3. VENETOCLAX [Suspect]
     Active Substance: VENETOCLAX
     Indication: CHRONIC LYMPHOCYTIC LEUKAEMIA
     Route: 048
     Dates: start: 20160529

REACTIONS (13)
  - Full blood count decreased [Fatal]
  - Richter^s syndrome [Fatal]
  - Vision blurred [Unknown]
  - Cryptococcosis [Fatal]
  - Bacterial sepsis [Fatal]
  - Chronic lymphocytic leukaemia [Fatal]
  - Febrile neutropenia [Unknown]
  - Cryptococcosis [Unknown]
  - Fungal sepsis [Fatal]
  - Subretinal fluid [Recovered/Resolved]
  - Retinal disorder [Unknown]
  - Visual acuity reduced [Unknown]
  - Retinopathy [Recovering/Resolving]

NARRATIVE: CASE EVENT DATE: 201606
